FAERS Safety Report 23423564 (Version 3)
Quarter: 2024Q1

REPORT INFORMATION
  Report Type: Spontaneous
  Country: IT (occurrence: IT)
  Receive Date: 20240119
  Receipt Date: 20240214
  Transmission Date: 20240410
  Serious: Yes (Other)
  Sender: FDA-Public Use
  Company Number: IT-BAUSCH-BL-2024-000834

PATIENT
  Age: 69 Year
  Sex: Female

DRUGS (2)
  1. RIFAXIMIN [Suspect]
     Active Substance: RIFAXIMIN
     Indication: Vomiting
     Route: 048
  2. RIFAXIMIN [Suspect]
     Active Substance: RIFAXIMIN
     Indication: Diarrhoea

REACTIONS (14)
  - Blood test abnormal [Recovering/Resolving]
  - Haematochezia [Recovering/Resolving]
  - Lip haemorrhage [Recovering/Resolving]
  - Anal fissure [Recovering/Resolving]
  - Nephrolithiasis [Unknown]
  - Gait disturbance [Recovering/Resolving]
  - Eye disorder [Recovered/Resolved]
  - Balance disorder [Recovering/Resolving]
  - Lip dry [Recovering/Resolving]
  - Neck pain [Recovering/Resolving]
  - Ear pain [Recovering/Resolving]
  - Dizziness [Recovering/Resolving]
  - Headache [Recovering/Resolving]
  - Intentional underdose [Unknown]

NARRATIVE: CASE EVENT DATE: 20240113
